FAERS Safety Report 5081606-6 (Version None)
Quarter: 2006Q3

REPORT INFORMATION
  Report Type: 
  Country: None (occurrence: None)
  Receive Date: 20060810
  Receipt Date: 20060807
  Transmission Date: 20061208
  Serious: Yes (Other)
  Sender: FDA-Public Use
  Company Number: STA-AE-05-MTX-016

PATIENT
  Age: 51 Year
  Sex: Female

DRUGS (16)
  1. METHOTREXATE [Suspect]
     Indication: RHEUMATOID ARTHRITIS
     Dosage: 20 MG - 1XW - ORAL
     Route: 048
     Dates: start: 20040621
  2. REMICADE [Suspect]
     Indication: RHEUMATOID ARTHRITIS
     Dosage: IV
     Route: 042
     Dates: start: 20050420, end: 20050713
  3. PLACEBO [Suspect]
     Indication: RHEUMATOID ARTHRITIS
     Dosage: IV
     Route: 042
     Dates: start: 20050420, end: 20050713
  4. FOLIC ACID [Concomitant]
  5. PREDNISONE TAB [Concomitant]
  6. RANITIDINE [Concomitant]
  7. AMLODIPINE [Concomitant]
  8. METHYLDOPA [Concomitant]
  9. CAPTOPRIL [Concomitant]
  10. METRONIDAZOLE [Concomitant]
  11. IBUPROFEN [Concomitant]
  12. AMITRIPTYLINE (AMITRIPTYLINE) [Concomitant]
  13. PROPANOLOL (PROPANOLOL HCL) [Concomitant]
  14. HYDROCHLOROTHIAZIDE [Concomitant]
  15. SECNIDAZOLE (SECNIDAZOLE) [Concomitant]
  16. TERBINAFINE HCL [Concomitant]

REACTIONS (2)
  - ANAL CANCER [None]
  - RECTAL CANCER [None]
